FAERS Safety Report 6335164-6 (Version None)
Quarter: 2009Q3

REPORT INFORMATION
  Report Type: 
  Country: None (occurrence: None)
  Receive Date: 20090828
  Receipt Date: 20090828
  Transmission Date: 20100115
  Serious: Yes (Other)
  Sender: FDA-Public Use
  Company Number: None

PATIENT

DRUGS (1)
  1. GENERIC VALPROIC ACID [Suspect]
     Indication: BIPOLAR DISORDER
     Dosage: 500 FOUR BIDS PO
     Route: 048
     Dates: start: 20090501

REACTIONS (4)
  - DISCOMFORT [None]
  - EPISTAXIS [None]
  - NASAL DRYNESS [None]
  - PRODUCT SUBSTITUTION ISSUE [None]
